FAERS Safety Report 10098647 (Version 1)
Quarter: 2014Q2

REPORT INFORMATION
  Report Type: Spontaneous
  Country: US (occurrence: US)
  Receive Date: 20140423
  Receipt Date: 20140423
  Transmission Date: 20141212
  Serious: Yes (Other)
  Sender: FDA-Public Use
  Company Number: US-ROXANE LABORATORIES, INC.-2014-RO-00618RO

PATIENT
  Sex: 0

DRUGS (4)
  1. PREDNISONE [Suspect]
     Indication: SINUSITIS
     Dosage: 30 MG
     Route: 065
  2. PREDNISONE [Suspect]
     Indication: EAR INFECTION
  3. LEVOFLOXACIN [Suspect]
     Indication: SINUSITIS
     Route: 065
  4. LEVOFLOXACIN [Suspect]
     Indication: EAR INFECTION
     Route: 065

REACTIONS (3)
  - Small fibre neuropathy [Not Recovered/Not Resolved]
  - Tendon pain [Unknown]
  - Abdominal pain upper [Unknown]
